FAERS Safety Report 20329056 (Version 1)
Quarter: 2022Q1

REPORT INFORMATION
  Report Type: Spontaneous
  Country: US (occurrence: US)
  Receive Date: 20220112
  Receipt Date: 20220112
  Transmission Date: 20220423
  Serious: No
  Sender: FDA-Public Use
  Company Number: US-INTRA-CELLULAR THERAPIES, INC.-2021ICT00560

PATIENT
  Sex: Male
  Weight: 93.878 kg

DRUGS (1)
  1. CAPLYTA [Suspect]
     Active Substance: LUMATEPERONE
     Indication: Schizoaffective disorder
     Dosage: 42 MG, 1X/DAY AT BEDTIME WITH FOOD
     Route: 048
     Dates: start: 20211020, end: 202111

REACTIONS (10)
  - Initial insomnia [Unknown]
  - Middle insomnia [Unknown]
  - Disturbance in attention [Unknown]
  - Insomnia [Unknown]
  - Sleep deficit [Unknown]
  - Weight decreased [Unknown]
  - Off label use [Recovered/Resolved]
  - Feeling abnormal [Unknown]
  - Dry mouth [Unknown]
  - Decreased appetite [Unknown]

NARRATIVE: CASE EVENT DATE: 20210101
